FAERS Safety Report 13720761 (Version 3)
Quarter: 2017Q3

REPORT INFORMATION
  Report Type: Spontaneous
  Country: DE (occurrence: DE)
  Receive Date: 20170706
  Receipt Date: 20170728
  Transmission Date: 20171127
  Serious: Yes (Other)
  Sender: FDA-Public Use
  Company Number: DE-SUN PHARMACEUTICAL INDUSTRIES LTD-2017RR-144184

PATIENT
  Age: 4 Year
  Sex: Female

DRUGS (1)
  1. ISOTRETINOIN [Suspect]
     Active Substance: ISOTRETINOIN
     Indication: NEUROBLASTOMA RECURRENT
     Dosage: IN 2-(3) DIVIDED DOSES FOR SUBSEQUENT 14 DAYS FOLLOWED BY A 14 DAY REST, TOTAL OF 6 CYCLES
     Route: 048

REACTIONS (9)
  - Dry skin [Unknown]
  - Epiphyses premature fusion [Unknown]
  - Dwarfism [Unknown]
  - Constipation [Unknown]
  - Gait disturbance [Unknown]
  - Growth failure [Unknown]
  - Off label use [Unknown]
  - Pain in extremity [Unknown]
  - Headache [Unknown]
